FAERS Safety Report 20596814 (Version 2)
Quarter: 2022Q1

REPORT INFORMATION
  Report Type: Report from Study
  Country: CN (occurrence: CN)
  Receive Date: 20220315
  Receipt Date: 20220322
  Transmission Date: 20220423
  Serious: Yes (Hospitalization, Other)
  Sender: FDA-Public Use
  Company Number: CN-TAKEDA-2022TUS016855

PATIENT
  Age: 84 Year
  Sex: Male
  Weight: 66 kg

DRUGS (26)
  1. IXAZOMIB [Suspect]
     Active Substance: IXAZOMIB
     Indication: Plasma cell myeloma
     Dosage: 3 MILLIGRAM
     Route: 048
     Dates: start: 20211119
  2. BISOPROLOL [Concomitant]
     Active Substance: BISOPROLOL
     Indication: Hypertension
     Dosage: 2.5 MILLIGRAM, TID
     Route: 048
     Dates: start: 20201210
  3. BISOPROLOL [Concomitant]
     Active Substance: BISOPROLOL
     Indication: Coronary artery disease
  4. SPIRONOLACTONE [Concomitant]
     Active Substance: SPIRONOLACTONE
     Indication: Hypertension
     Dosage: 20 MILLIGRAM, TID
     Route: 048
     Dates: start: 20201210
  5. SPIRONOLACTONE [Concomitant]
     Active Substance: SPIRONOLACTONE
     Indication: Coronary artery disease
  6. CANDESARTAN CILEXETIL [Concomitant]
     Active Substance: CANDESARTAN CILEXETIL
     Indication: Hypertension
     Dosage: 8 MILLIGRAM, QD
     Route: 048
     Dates: start: 20210303
  7. FEBUXOSTAT [Concomitant]
     Active Substance: FEBUXOSTAT
     Indication: Blood uric acid increased
     Dosage: 40 MILLIGRAM, QD
     Route: 048
     Dates: start: 20210327
  8. CLOPIDOGREL BISULFATE [Concomitant]
     Active Substance: CLOPIDOGREL BISULFATE
     Indication: Coronary artery disease
     Dosage: 75 MILLIGRAM, QD
     Route: 048
     Dates: start: 20210412
  9. ROSUVASTATIN CALCIUM [Concomitant]
     Active Substance: ROSUVASTATIN CALCIUM
     Indication: Coronary artery disease
     Dosage: 10 MILLIGRAM, QD
     Route: 048
     Dates: start: 20210412
  10. TORSEMIDE [Concomitant]
     Active Substance: TORSEMIDE
     Indication: Hypertension
     Dosage: 10 MILLIGRAM, QD
     Route: 048
     Dates: start: 20210429
  11. BACILLUS LICHENIFORMIS CAPSULE,LIVE [Concomitant]
     Indication: Diarrhoea
     Dosage: 0.5 GRAM, TID
     Route: 048
     Dates: start: 20210413
  12. CALCIUM CARBONATE\CHOLECALCIFEROL [Concomitant]
     Active Substance: CALCIUM CARBONATE\CHOLECALCIFEROL
     Indication: Mineral supplementation
     Dosage: 0.6 MILLIGRAM, QD
     Route: 048
     Dates: start: 20210628
  13. POTASSIUM CHLORIDE [Concomitant]
     Active Substance: POTASSIUM CHLORIDE
     Indication: Mineral supplementation
     Dosage: 1 GRAM, BID
     Route: 048
     Dates: start: 20210628
  14. FUROSEMIDE [Concomitant]
     Active Substance: FUROSEMIDE
     Indication: Cardiac failure
     Dosage: 20 MILLIGRAM, QD
     Route: 048
     Dates: start: 20210630
  15. EUCALYPTOL, LIMONENE AND PINENE [Concomitant]
     Indication: Cough
     Dosage: 0.3 GRAM, BID
     Route: 048
     Dates: start: 20210702
  16. CELECOXIB [Concomitant]
     Active Substance: CELECOXIB
     Indication: Analgesic therapy
     Dosage: 0.2 GRAM, QD
     Route: 048
     Dates: start: 20210630
  17. CELECOXIB [Concomitant]
     Active Substance: CELECOXIB
     Indication: Infection prophylaxis
     Dosage: 1.5 GRAM, Q12H
     Route: 042
  18. LOPERAMIDE [Concomitant]
     Active Substance: LOPERAMIDE
     Indication: Antidiarrhoeal supportive care
     Dosage: 2 MILLIGRAM, TID
     Route: 048
     Dates: start: 20210720
  19. SACUBITRIL\VALSARTAN [Concomitant]
     Active Substance: SACUBITRIL\VALSARTAN
     Indication: Cardiac failure
     Dosage: UNK, BID
     Route: 048
     Dates: start: 20210628
  20. METHOXYPHENAMINE HCL [Concomitant]
     Indication: Cough
     Dosage: UNK, TID
     Route: 048
     Dates: start: 20210630
  21. AMBROXOL [Concomitant]
     Active Substance: AMBROXOL
     Indication: Productive cough
     Dosage: 10 MILLILITER
     Route: 048
     Dates: start: 20210729
  22. VALACYCLOVIR [Concomitant]
     Active Substance: VALACYCLOVIR HYDROCHLORIDE
     Indication: Antiviral prophylaxis
     Dosage: 0.3 GRAM, BID
     Route: 048
     Dates: start: 20210804
  23. GABAPENTIN [Concomitant]
     Active Substance: GABAPENTIN
     Indication: Analgesic therapy
     Dosage: 0.3 GRAM, BID
     Route: 048
     Dates: start: 20210914
  24. METHYLCOBALAMIN [Concomitant]
     Active Substance: METHYLCOBALAMIN
     Indication: Nervous system disorder
     Dosage: 0.5 MILLIGRAM, TID
     Route: 048
     Dates: start: 20210930
  25. DEXAMETHASONE [Concomitant]
     Active Substance: DEXAMETHASONE
     Indication: Plasma cell myeloma
     Dosage: 9.75 MILLIGRAM, BID
     Route: 048
     Dates: start: 20211118
  26. PANTOPRAZOLE SODIUM [Concomitant]
     Active Substance: PANTOPRAZOLE SODIUM
     Indication: Gastritis prophylaxis
     Dosage: 40 MILLIGRAM, BID
     Route: 048
     Dates: start: 20211118

REACTIONS (1)
  - Pneumonia [Not Recovered/Not Resolved]

NARRATIVE: CASE EVENT DATE: 20220303
